FAERS Safety Report 14452505 (Version 3)
Quarter: 2018Q1

REPORT INFORMATION
  Report Type: Spontaneous
  Country: US (occurrence: US)
  Receive Date: 20180129
  Receipt Date: 20180214
  Transmission Date: 20180509
  Serious: No
  Sender: FDA-Public Use
  Company Number: US-PFIZER INC-2018038848

PATIENT
  Age: 84 Year
  Sex: Female

DRUGS (2)
  1. LYRICA CR [Suspect]
     Active Substance: PREGABALIN
     Indication: DIABETIC NEUROPATHY
     Dosage: TOOK 1 TABLET TWICE A DAY BY MOUTH
     Route: 048
     Dates: start: 20180123
  2. LYRICA CR [Suspect]
     Active Substance: PREGABALIN
     Indication: ARTHRITIS
     Dosage: 1 CAP @ H.S
     Route: 048

REACTIONS (3)
  - Somnolence [Unknown]
  - Insomnia [Unknown]
  - Fatigue [Unknown]

NARRATIVE: CASE EVENT DATE: 20180123
